FAERS Safety Report 23928853 (Version 1)
Quarter: 2024Q2

REPORT INFORMATION
  Report Type: Spontaneous
  Country: US (occurrence: US)
  Receive Date: 20240531
  Receipt Date: 20240531
  Transmission Date: 20240716
  Serious: No
  Sender: FDA-Public Use
  Company Number: US-RADIUS HEALTH INC.-2023US003324

PATIENT
  Sex: Female

DRUGS (1)
  1. TYMLOS [Suspect]
     Active Substance: ABALOPARATIDE
     Indication: Senile osteoporosis
     Dosage: 80 MICROGRAM, QD
     Route: 058
     Dates: start: 202304

REACTIONS (8)
  - Depressed mood [Unknown]
  - Intentional dose omission [Unknown]
  - Blood calcium abnormal [Recovered/Resolved]
  - Abdominal pain [Unknown]
  - Nausea [Unknown]
  - Bone pain [Unknown]
  - Muscle spasms [Unknown]
  - Pain [Unknown]
